FAERS Safety Report 10177791 (Version 1)
Quarter: 2014Q2

REPORT INFORMATION
  Report Type: Spontaneous
  Country: US (occurrence: US)
  Receive Date: 20140516
  Receipt Date: 20140516
  Transmission Date: 20141212
  Serious: No
  Sender: FDA-Public Use
  Company Number: US-SANOFI-AVENTIS-2013SA088626

PATIENT
  Age: 55 Year
  Sex: Female

DRUGS (1)
  1. APIDRA SOLOSTAR [Suspect]
     Dosage: PRODUCT START DATE:-MORE THAN 9 MONTHS DOSE:33 UNIT(S)
     Route: 058

REACTIONS (2)
  - Laryngospasm [Unknown]
  - Cough [Unknown]
